FAERS Safety Report 6933726-6 (Version None)
Quarter: 2010Q3

REPORT INFORMATION
  Report Type: 
  Country: None (occurrence: None)
  Receive Date: 20100820
  Receipt Date: 20100311
  Transmission Date: 20110219
  Serious: Yes (Other)
  Sender: FDA-Public Use
  Company Number: US-PFIZER INC-2010032461

PATIENT
  Sex: Female
  Weight: 63.492 kg

DRUGS (8)
  1. LYRICA [Suspect]
     Indication: PAIN
     Dosage: 75 MG, 2X/DAY
     Route: 048
     Dates: start: 20100308
  2. GABAPENTIN [Suspect]
     Indication: PAIN
     Dosage: 100 MG, 3X/DAY
     Route: 048
     Dates: start: 20100201, end: 20100101
  3. GABAPENTIN [Suspect]
     Dosage: 200 MG, 3X/DAY
     Route: 048
  4. GABAPENTIN [Suspect]
     Dosage: UNK, 3X/DAY
     Route: 048
  5. LEVOTHYROXINE [Concomitant]
     Indication: THYROID DISORDER
     Dosage: 0.05 MG, UNK
     Route: 048
  6. LISINOPRIL [Concomitant]
     Indication: HYPERTENSION
     Dosage: 5 MG, UNK
     Route: 048
  7. PERCOCET [Concomitant]
     Indication: PAIN
     Dosage: 650 MG, 3X/DAY
     Route: 048
  8. HYDROCODONE [Concomitant]
     Indication: PAIN
     Dosage: AS NEEDED
     Route: 048

REACTIONS (2)
  - MOBILITY DECREASED [None]
  - TREMOR [None]
